FAERS Safety Report 24254620 (Version 6)
Quarter: 2025Q1

REPORT INFORMATION
  Report Type: Spontaneous
  Country: US (occurrence: US)
  Receive Date: 20240827
  Receipt Date: 20250114
  Transmission Date: 20250409
  Serious: No
  Sender: PFIZER
  Company Number: US-PFIZER INC-202400243890

PATIENT
  Age: 68 Year
  Sex: Female

DRUGS (3)
  1. BOSULIF [Suspect]
     Active Substance: BOSUTINIB MONOHYDRATE
     Indication: Chronic myeloid leukaemia
     Dosage: TAKE WITH FOOD. SWALLOW WHOLE DO NOT CRUSH, OR CUT DO NOT TOUCH OR HANDLE CRUSHED OR BROKEN TABLETS
     Route: 048
  2. BOSULIF [Suspect]
     Active Substance: BOSUTINIB MONOHYDRATE
     Dosage: TAKE 1 TABLET, TAKE WITH FOOD. SWALLOW WHOLE. DO NOT CRUSH OR CUT. DO NOT TOUCH OR HANDLE CRUSHED OR
     Route: 048
  3. VIBRAMYCIN [DOXYCYCLINE HYCLATE] [Concomitant]

REACTIONS (2)
  - Full blood count abnormal [Unknown]
  - Rash [Unknown]
